FAERS Safety Report 4836274-2 (Version None)
Quarter: 2005Q4

REPORT INFORMATION
  Report Type: 
  Country: None (occurrence: None)
  Receive Date: 20051123
  Receipt Date: 20051115
  Transmission Date: 20060501
  Serious: Yes (Other)
  Sender: FDA-Public Use
  Company Number: US-JNJFOC-20051104678

PATIENT
  Sex: Female

DRUGS (5)
  1. CONCERTA [Suspect]
     Dosage: 2 TABS DAILY, STOPPED WHILE RECOVERING FROM SURGICAL PROCEDURE.
     Route: 048
  2. CONCERTA [Suspect]
     Route: 048
  3. NEURONTIN [Concomitant]
  4. SERZONE [Concomitant]
     Indication: ANXIETY
  5. SYNTHROID [Concomitant]
     Indication: HYPOTHYROIDISM

REACTIONS (2)
  - HALLUCINATION, AUDITORY [None]
  - SUICIDAL IDEATION [None]
